FAERS Safety Report 16681919 (Version 1)
Quarter: 2019Q3

REPORT INFORMATION
  Report Type: Spontaneous
  Country: US (occurrence: US)
  Receive Date: 20190808
  Receipt Date: 20190808
  Transmission Date: 20191004
  Serious: No
  Sender: FDA-Public Use
  Company Number: US-BEH-2019105173

PATIENT
  Age: 64 Year
  Sex: Female

DRUGS (13)
  1. HIZENTRA [Suspect]
     Active Substance: HUMAN IMMUNOGLOBULIN G
     Indication: IMMUNODEFICIENCY COMMON VARIABLE
     Dosage: 15 GRAM, QW
     Route: 058
     Dates: start: 20180206
  2. FLUOXETIN [Concomitant]
     Active Substance: FLUOXETINE HYDROCHLORIDE
  3. HIZENTRA [Suspect]
     Active Substance: HUMAN IMMUNOGLOBULIN G
     Dosage: UNK
     Route: 058
  4. HIZENTRA [Suspect]
     Active Substance: HUMAN IMMUNOGLOBULIN G
     Dosage: UNK
     Route: 058
  5. BUTALBITAL APAP CAFFEINE [Concomitant]
     Active Substance: ACETAMINOPHEN\BUTALBITAL\CAFFEINE
  6. GABAPENTIN. [Concomitant]
     Active Substance: GABAPENTIN
  7. HIZENTRA [Suspect]
     Active Substance: HUMAN IMMUNOGLOBULIN G
     Dosage: UNK
     Route: 058
  8. ATORVASTATIN [Concomitant]
     Active Substance: ATORVASTATIN
  9. MONTELUKAST [Concomitant]
     Active Substance: MONTELUKAST SODIUM
  10. SUCRALFATE. [Concomitant]
     Active Substance: SUCRALFATE
  11. CELECOXIB. [Concomitant]
     Active Substance: CELECOXIB
  12. DIAZEPAM. [Concomitant]
     Active Substance: DIAZEPAM
  13. OMEPRAZOLE. [Concomitant]
     Active Substance: OMEPRAZOLE

REACTIONS (7)
  - Headache [Not Recovered/Not Resolved]
  - Aphthous ulcer [Not Recovered/Not Resolved]
  - Fatigue [Not Recovered/Not Resolved]
  - Arthralgia [Not Recovered/Not Resolved]
  - Body temperature decreased [Not Recovered/Not Resolved]
  - Pain [Not Recovered/Not Resolved]
  - Abdominal tenderness [Not Recovered/Not Resolved]
